FAERS Safety Report 5454320-2 (Version None)
Quarter: 2007Q3

REPORT INFORMATION
  Report Type: 
  Country: None (occurrence: None)
  Receive Date: 20070917
  Receipt Date: 20060831
  Transmission Date: 20080115
  Serious: No
  Sender: FDA-Public Use
  Company Number: US-ASTRAZENECA-2006UW17289

PATIENT
  Age: 57 Year
  Sex: Female
  Weight: 78 kg

DRUGS (8)
  1. SEROQUEL [Suspect]
     Indication: BIPOLAR DISORDER
     Route: 048
     Dates: start: 20030101
  2. TEGRETOL [Concomitant]
  3. LITHIUM [Concomitant]
  4. ATENOLOL [Concomitant]
  5. SIMVASTATIN [Concomitant]
  6. AMOXICLAV [Concomitant]
  7. CLONAZEPAM [Concomitant]
  8. PRILOSEC [Concomitant]

REACTIONS (4)
  - DIZZINESS [None]
  - GAIT DISTURBANCE [None]
  - INTESTINAL FUNCTIONAL DISORDER [None]
  - WEIGHT INCREASED [None]
